FAERS Safety Report 9244708 (Version 1)
Quarter: 2013Q1

REPORT INFORMATION
  Report Type: Spontaneous
  Country: US (occurrence: None)
  Receive Date: 20121130
  Receipt Date: 20121130
  Transmission Date: 20140127
  Serious: Yes (Other)
  Sender: FDA-Public Use
  Company Number: PHEH2012US013973

PATIENT
  Sex: Male

DRUGS (1)
  1. LAMISIL [Suspect]
     Dates: start: 201201, end: 201203

REACTIONS (1)
  - Hepatic failure [None]
